FAERS Safety Report 8217985-8 (Version None)
Quarter: 2012Q1

REPORT INFORMATION
  Report Type: 
  Country: None (occurrence: None)
  Receive Date: 20120319
  Receipt Date: 20120312
  Transmission Date: 20120608
  Serious: Yes (Other)
  Sender: FDA-Public Use
  Company Number: US-PFIZER INC-2012065526

PATIENT
  Sex: Female

DRUGS (1)
  1. DETROL LA [Suspect]
     Dosage: UNK

REACTIONS (5)
  - URINARY TRACT INFECTION [None]
  - KIDNEY INFECTION [None]
  - BREAST CANCER FEMALE [None]
  - PNEUMONIA [None]
  - INCONTINENCE [None]
